FAERS Safety Report 12937364 (Version 1)
Quarter: 2016Q4

REPORT INFORMATION
  Report Type: Report from Study
  Country: US (occurrence: US)
  Receive Date: 20161114
  Receipt Date: 20161114
  Transmission Date: 20170207
  Serious: Yes (Hospitalization)
  Sender: FDA-Public Use
  Company Number: US-JNJFOC-20161018427

PATIENT
  Sex: Male

DRUGS (4)
  1. IMBRUVICA [Suspect]
     Active Substance: IBRUTINIB
     Indication: MANTLE CELL LYMPHOMA
     Route: 048
     Dates: start: 20161008, end: 2016
  2. PANTOPRAZOLE [Concomitant]
     Active Substance: PANTOPRAZOLE SODIUM
  3. OXYCODONE [Concomitant]
     Active Substance: OXYCODONE
  4. HYDROMORPHONE [Concomitant]
     Active Substance: HYDROMORPHONE

REACTIONS (4)
  - Abdominal pain upper [Unknown]
  - Constipation [Unknown]
  - Thrombosis [Unknown]
  - Groin pain [Unknown]
